FAERS Safety Report 16373797 (Version 2)
Quarter: 2019Q2

REPORT INFORMATION
  Report Type: Spontaneous
  Country: US (occurrence: US)
  Receive Date: 20190530
  Receipt Date: 20190605
  Transmission Date: 20190711
  Serious: Yes (Other)
  Sender: FDA-Public Use
  Company Number: US-PFIZER INC-2019225039

PATIENT
  Age: 50 Year
  Sex: Male

DRUGS (2)
  1. DOXORUBICIN HCL [Suspect]
     Active Substance: DOXORUBICIN HYDROCHLORIDE
     Indication: ANGIOSARCOMA
     Dosage: 45 MG/M2, CYCLIC (PEGYLATED LIPOSOMAL DOXORUBICIN, EVERY 4 WEEKS, TOTAL OF 30 CYCLES)
  2. DOXORUBICIN HCL [Suspect]
     Active Substance: DOXORUBICIN HYDROCHLORIDE
     Dosage: UNK, CYCLIC (PEGYLATED LIPOSOMAL DOXORUBICIN, ADDITIONAL 12 MONTHS)

REACTIONS (6)
  - Palmar-plantar erythrodysaesthesia syndrome [Recovering/Resolving]
  - Toxicity to various agents [Recovering/Resolving]
  - Second primary malignancy [Recovering/Resolving]
  - Bowen^s disease [Recovering/Resolving]
  - Palmoplantar keratoderma [Recovering/Resolving]
  - Actinic keratosis [Recovering/Resolving]
